FAERS Safety Report 4427945-0 (Version None)
Quarter: 2004Q3

REPORT INFORMATION
  Report Type: 
  Country: None (occurrence: None)
  Receive Date: 20040813
  Receipt Date: 20040805
  Transmission Date: 20050211
  Serious: Yes (Hospitalization)
  Sender: FDA-Public Use
  Company Number: DSA_70370_2004

PATIENT
  Age: 40 Year
  Sex: Female

DRUGS (5)
  1. ROXICODONE [Suspect]
     Indication: PAIN
     Dosage: 15 MG TID PO
     Route: 048
     Dates: start: 20040201, end: 20040705
  2. PREMARIN [Concomitant]
  3. TOPAMAX [Concomitant]
  4. IMITREX               ^CERENEX^ [Concomitant]
  5. ZOLOFT [Concomitant]

REACTIONS (5)
  - AMNESIA [None]
  - ANXIETY [None]
  - DEPRESSION [None]
  - FEELING ABNORMAL [None]
  - IMPAIRED WORK ABILITY [None]
